FAERS Safety Report 6227335-4 (Version None)
Quarter: 2009Q2

REPORT INFORMATION
  Report Type: 
  Country: None (occurrence: None)
  Receive Date: 20090612
  Receipt Date: 20090604
  Transmission Date: 20091009
  Serious: Yes (Disabling, Other)
  Sender: FDA-Public Use
  Company Number: US-MYLANLABS-2009S1009851

PATIENT
  Age: 22 Year
  Sex: Female
  Weight: 95.26 kg

DRUGS (4)
  1. LEVETIRACETAM [Suspect]
     Indication: CONVULSION PROPHYLAXIS
     Route: 048
     Dates: start: 20090111, end: 20090112
  2. LEVETIRACETAM [Suspect]
     Indication: GRAND MAL CONVULSION
     Route: 048
     Dates: start: 20090111, end: 20090112
  3. LEVETIRACETAM [Suspect]
     Indication: PETIT MAL EPILEPSY
     Route: 048
     Dates: start: 20090111, end: 20090112
  4. LAMICTAL [Concomitant]
     Indication: CONVULSION PROPHYLAXIS
     Route: 048
     Dates: start: 20080101

REACTIONS (6)
  - AMNESIA [None]
  - FALL [None]
  - FATIGUE [None]
  - GRAND MAL CONVULSION [None]
  - HEAD INJURY [None]
  - HEADACHE [None]
